FAERS Safety Report 14970901 (Version 1)
Quarter: 2018Q2

REPORT INFORMATION
  Report Type: Spontaneous
  Country: DK (occurrence: DK)
  Receive Date: 20180604
  Receipt Date: 20180604
  Transmission Date: 20180711
  Serious: Yes (Other)
  Sender: FDA-Public Use
  Company Number: DK-MYLANLABS-2018M1035962

PATIENT
  Age: 35 Year
  Sex: Male

DRUGS (6)
  1. BACLOFEN. [Suspect]
     Active Substance: BACLOFEN
     Indication: PRODUCT USED FOR UNKNOWN INDICATION
     Dosage: 1672.6 UG, QD
     Route: 037
     Dates: start: 20171120
  2. BACLOFEN. [Concomitant]
     Active Substance: BACLOFEN
     Indication: PRODUCT USED FOR UNKNOWN INDICATION
     Dosage: UNK
     Route: 048
  3. BACLOFEN. [Suspect]
     Active Substance: BACLOFEN
     Dosage: 1672.6 UG, QD
     Route: 037
     Dates: start: 20180123
  4. BACLOFEN. [Suspect]
     Active Substance: BACLOFEN
     Dosage: 1672.6 UG, QD
     Route: 037
     Dates: start: 20180127
  5. BACLOFEN. [Suspect]
     Active Substance: BACLOFEN
     Dosage: 1672.6 UG, QD
     Route: 037
     Dates: start: 20180126
  6. BACLOFEN. [Suspect]
     Active Substance: BACLOFEN
     Dosage: 720 UG, UNK
     Route: 037

REACTIONS (2)
  - Drug withdrawal syndrome [Recovered/Resolved]
  - Device failure [Recovered/Resolved]

NARRATIVE: CASE EVENT DATE: 20180128
